FAERS Safety Report 17915403 (Version 3)
Quarter: 2023Q1

REPORT INFORMATION
  Report Type: Other
  Country: CO (occurrence: CO)
  Receive Date: 20200619
  Receipt Date: 20230109
  Transmission Date: 20230417
  Serious: Yes (Life-Threatening, Other)
  Sender: FDA-Public Use
  Company Number: CO-ROCHE-2626167

PATIENT
  Age: 8 Year
  Sex: Female
  Weight: 49 kg

DRUGS (4)
  1. XOLAIR [Suspect]
     Active Substance: OMALIZUMAB
     Indication: Asthma
     Route: 058
     Dates: start: 201611
  2. XOLAIR [Suspect]
     Active Substance: OMALIZUMAB
     Dosage: 300 MG, BIW
     Route: 058
     Dates: start: 20170629
  3. XOLAIR [Suspect]
     Active Substance: OMALIZUMAB
     Dosage: POWDER FOR RECONSTITUTION
     Route: 058
     Dates: start: 201808
  4. XOLAIR [Suspect]
     Active Substance: OMALIZUMAB
     Dosage: 600 MG, QMO
     Route: 058

REACTIONS (13)
  - Asthmatic crisis [Not Recovered/Not Resolved]
  - Dyspnoea [Not Recovered/Not Resolved]
  - Skin discolouration [Not Recovered/Not Resolved]
  - Cyanosis [Unknown]
  - Anaphylactic reaction [Recovered/Resolved]
  - Dermatitis allergic [Not Recovered/Not Resolved]
  - Abdominal pain [Unknown]
  - Abdominal pain upper [Not Recovered/Not Resolved]
  - Diarrhoea [Not Recovered/Not Resolved]
  - Application site rash [Unknown]
  - Rash [Unknown]
  - Hypersensitivity [Unknown]
  - Drug ineffective [Unknown]

NARRATIVE: CASE EVENT DATE: 20161101
